FAERS Safety Report 5226620-2 (Version None)
Quarter: 2007Q1

REPORT INFORMATION
  Report Type: 
  Country: None (occurrence: None)
  Receive Date: 20070201
  Receipt Date: 20070124
  Transmission Date: 20070707
  Serious: Yes (Other)
  Sender: FDA-Public Use
  Company Number: US-PFIZER INC-2007007169

PATIENT
  Sex: Male
  Weight: 81.6 kg

DRUGS (4)
  1. LIPITOR [Suspect]
     Indication: BLOOD CHOLESTEROL INCREASED
     Dates: start: 20040101, end: 20070101
  2. METFORMIN HCL [Concomitant]
  3. ACTOS [Concomitant]
  4. ANTIHYPERTENSIVES [Concomitant]

REACTIONS (3)
  - DYSSTASIA [None]
  - MUSCULAR WEAKNESS [None]
  - MYALGIA [None]
